FAERS Safety Report 5101986-2 (Version None)
Quarter: 2006Q3

REPORT INFORMATION
  Report Type: 
  Country: None (occurrence: None)
  Receive Date: 20060907
  Receipt Date: 20060825
  Transmission Date: 20061208
  Serious: Yes (Other)
  Sender: FDA-Public Use
  Company Number: 2006098039

PATIENT
  Sex: Male
  Weight: 61.2356 kg

DRUGS (10)
  1. LIPITOR [Suspect]
     Indication: BLOOD CHOLESTEROL
     Dosage: 20 MG
  2. CAVERJECT [Suspect]
     Indication: ERECTILE DYSFUNCTION
     Dosage: 5 MCG
  3. WELLBUTRIN [Concomitant]
  4. NADOLOL [Concomitant]
  5. HYDROCHLOROTHIAZIDE [Concomitant]
  6. ALTACE [Concomitant]
  7. TERAZOSIN HCL [Concomitant]
  8. PLAVIX [Concomitant]
  9. MIRAPEX [Concomitant]
  10. ZETIA [Concomitant]

REACTIONS (3)
  - BENIGN LUNG NEOPLASM [None]
  - ERECTILE DYSFUNCTION [None]
  - INJECTION SITE PAIN [None]
